FAERS Safety Report 7254029-9 (Version None)
Quarter: 2011Q1

REPORT INFORMATION
  Report Type: 
  Country: None (occurrence: None)
  Receive Date: 20110129
  Receipt Date: 20100318
  Transmission Date: 20110831
  Serious: No
  Sender: FDA-Public Use
  Company Number: US-ABBOTT-10P-163-0633600-00

PATIENT
  Sex: Female
  Weight: 86.26 kg

DRUGS (2)
  1. ARENELLE [Concomitant]
     Indication: PRODUCT USED FOR UNKNOWN INDICATION
  2. HUMIRA [Suspect]
     Indication: COLITIS ULCERATIVE
     Dates: start: 20080101

REACTIONS (3)
  - INJECTION SITE WARMTH [None]
  - ECZEMA [None]
  - INJECTION SITE ERYTHEMA [None]
